FAERS Safety Report 11573238 (Version 3)
Quarter: 2015Q4

REPORT INFORMATION
  Report Type: Spontaneous
  Country: US (occurrence: US)
  Receive Date: 20150916
  Receipt Date: 20151104
  Transmission Date: 20160304
  Serious: No
  Sender: FDA-Public Use
  Company Number: US-ELI_LILLY_AND_COMPANY-US200910006842

PATIENT
  Age: 72 Year
  Sex: Female

DRUGS (8)
  1. FORTEO [Suspect]
     Active Substance: TERIPARATIDE
     Dosage: 20 UG, DAILY (1/D)
  2. FORTEO [Suspect]
     Active Substance: TERIPARATIDE
     Dosage: 20 UG, DAILY (1/D)
     Route: 065
  3. FORTEO [Suspect]
     Active Substance: TERIPARATIDE
     Dosage: 20 UG, QD
  4. FORTEO [Suspect]
     Active Substance: TERIPARATIDE
     Dosage: 20 UG, DAILY (1/D)
     Route: 065
  5. FORTEO [Suspect]
     Active Substance: TERIPARATIDE
     Dosage: 20 UG, DAILY (1/D)
  6. FORTEO [Suspect]
     Active Substance: TERIPARATIDE
     Dosage: 20 UG, DAILY (1/D)
  7. FORTEO [Suspect]
     Active Substance: TERIPARATIDE
     Dosage: 20 UG, QD
  8. FORTEO [Suspect]
     Active Substance: TERIPARATIDE
     Indication: OSTEOPOROSIS
     Dosage: 20 UG, DAILY (1/D)
     Route: 065
     Dates: start: 200909

REACTIONS (25)
  - Fall [Recovered/Resolved]
  - Paranoia [Unknown]
  - Aphonia [Recovering/Resolving]
  - Body height decreased [Unknown]
  - Feeling abnormal [Unknown]
  - Fall [Unknown]
  - Hiccups [Unknown]
  - Rhinorrhoea [Unknown]
  - Amnesia [Unknown]
  - Fatigue [Unknown]
  - Head injury [Unknown]
  - Nasopharyngitis [Unknown]
  - Muscle disorder [Unknown]
  - Headache [Recovered/Resolved]
  - Nausea [Unknown]
  - Muscular weakness [Unknown]
  - Muscular weakness [Recovered/Resolved]
  - Bone decalcification [Unknown]
  - Contusion [Unknown]
  - Fear [Unknown]
  - Drug ineffective [Unknown]
  - Muscle spasms [Unknown]
  - Blood sodium decreased [Unknown]
  - Gait disturbance [Recovered/Resolved]
  - Asthenia [Unknown]

NARRATIVE: CASE EVENT DATE: 201005
